FAERS Safety Report 7531024-3 (Version None)
Quarter: 2011Q2

REPORT INFORMATION
  Report Type: 
  Country: None (occurrence: None)
  Receive Date: 20110608
  Receipt Date: 20110526
  Transmission Date: 20111010
  Serious: Yes (Other)
  Sender: FDA-Public Use
  Company Number: US-BAYER-201034872NA

PATIENT
  Age: 26 Year
  Sex: Female
  Weight: 73 kg

DRUGS (9)
  1. YASMIN [Suspect]
  2. SYNTHROID [Concomitant]
     Dosage: UNK UNK, QD
  3. DROSPIRENONE AND ETHINYL ESTRADIOL [Suspect]
  4. MOTRIN [Concomitant]
  5. BYETTA [Concomitant]
  6. YAZ [Suspect]
     Indication: ORAL CONTRACEPTION
     Dosage: UNK
     Dates: start: 20050101, end: 20090101
  7. TYLENOL-500 [Concomitant]
  8. FERROUS SULFATE TAB [Concomitant]
  9. PHENTERMINE HYDROCHLORIDE [Concomitant]
     Indication: MEDICAL DIET
     Dosage: UNK
     Dates: start: 20080420

REACTIONS (6)
  - CHOLECYSTITIS CHRONIC [None]
  - GASTROINTESTINAL DISORDER [None]
  - NAUSEA [None]
  - ABDOMINAL PAIN [None]
  - ABDOMINAL PAIN UPPER [None]
  - BACK PAIN [None]
